FAERS Safety Report 4372389-3 (Version None)
Quarter: 2004Q2

REPORT INFORMATION
  Report Type: 
  Country: None (occurrence: None)
  Receive Date: 20040602
  Receipt Date: 20040518
  Transmission Date: 20050107
  Serious: Yes (Life-Threatening, Hospitalization)
  Sender: FDA-Public Use
  Company Number: TNZIE200400060

PATIENT
  Sex: Female

DRUGS (2)
  1. INNOHEP [Suspect]
     Indication: THROMBOSIS PROPHYLAXIS
     Dosage: 175 IU/KG (175 IU/KG, 1 IN 1 D) , SUBCUTANEOUS
     Route: 058
     Dates: start: 20030821, end: 20030924
  2. WARFARIN SODIUM [Concomitant]

REACTIONS (5)
  - DISEASE RECURRENCE [None]
  - OSTEOPOROTIC FRACTURE [None]
  - PELVIC FRACTURE [None]
  - PHLEBOTHROMBOSIS [None]
  - PULMONARY EMBOLISM [None]
